FAERS Safety Report 23718052 (Version 1)
Quarter: 2024Q2

REPORT INFORMATION
  Report Type: Spontaneous
  Country: US (occurrence: US)
  Receive Date: 20240408
  Receipt Date: 20240408
  Transmission Date: 20240716
  Serious: Yes (Hospitalization, Other)
  Sender: FDA-Public Use
  Company Number: US-GRAVITIPHARMA-GRA-2403-US-LIT-0063

PATIENT
  Age: 55 Year
  Sex: Female

DRUGS (10)
  1. BUPROPION HYDROCHLORIDE [Suspect]
     Active Substance: BUPROPION HYDROCHLORIDE
     Indication: Bipolar I disorder
  2. BUPROPION HYDROCHLORIDE [Suspect]
     Active Substance: BUPROPION HYDROCHLORIDE
  3. LITHIUM [Suspect]
     Active Substance: LITHIUM
     Indication: Bipolar I disorder
     Dosage: INCREASED FROM 600MG TO 900MG
  4. LITHIUM [Suspect]
     Active Substance: LITHIUM
  5. PROPRANOLOL [Concomitant]
     Active Substance: PROPRANOLOL HYDROCHLORIDE
     Indication: Product used for unknown indication
     Dosage: 10 MG TO 20 MG
  6. PROPRANOLOL [Concomitant]
     Active Substance: PROPRANOLOL HYDROCHLORIDE
  7. CLOZAPINE [Concomitant]
     Active Substance: CLOZAPINE
     Indication: Product used for unknown indication
     Dosage: DECREASED FROM 100 MG TO 50 MG
  8. CLOZAPINE [Concomitant]
     Active Substance: CLOZAPINE
  9. DEUTETRABENAZINE [Suspect]
     Active Substance: DEUTETRABENAZINE
     Indication: Product used for unknown indication
     Dosage: 12 MG/DAY TO 24 MG/DAY
  10. DEUTETRABENAZINE [Suspect]
     Active Substance: DEUTETRABENAZINE

REACTIONS (11)
  - Hyperprolactinaemia [Unknown]
  - Bradycardia [Recovering/Resolving]
  - Electrocardiogram QT prolonged [Recovering/Resolving]
  - Dizziness [Unknown]
  - Ataxia [Unknown]
  - Aphasia [Unknown]
  - Tremor [Recovering/Resolving]
  - Dysarthria [Unknown]
  - Confusional state [Unknown]
  - Drug interaction [Unknown]
  - Toxicity to various agents [Unknown]
